FAERS Safety Report 9837947 (Version 1)
Quarter: 2013Q4

REPORT INFORMATION
  Report Type: Spontaneous
  Country: US (occurrence: None)
  Receive Date: 20131205
  Receipt Date: 20131205
  Transmission Date: 20140711
  Serious: Yes (Hospitalization, Other)
  Sender: FDA-Public Use
  Company Number: 163-POMAL-13091751

PATIENT
  Age: 70 Year
  Sex: Female
  Weight: 56.25 kg

DRUGS (22)
  1. POMALYST (POMALIDOMIDE) (4 MILLIGRAM, CAPSULES) [Suspect]
     Indication: PLASMA CELL MYELOMA
     Dosage: 4 MG, 21 IN 28 D, PO?08/30/2013 - TEMPORARILY INTERRUPTED
     Route: 048
     Dates: start: 20130830
  2. PROZAC (FLUOXETINE HYDROCHLORIDE) [Concomitant]
  3. VITAMIN D (ERGOCALCIFEROL) [Concomitant]
  4. MACRODANTIN (NITROFURANTOIN) [Concomitant]
  5. WELLBUTRIN XL (VUPROPION HYDROCHLORIDE) [Concomitant]
  6. ATORVASTATIN (ATORVASTATIN) [Concomitant]
  7. DEXAMETHASONE (DEXAMETHASONE) [Concomitant]
  8. PROTONIX [Concomitant]
  9. MULTIVITAMIN (MULTIVITAMINS) [Concomitant]
  10. CLARITHROMYCIN (CLARITHROMYCIN) [Concomitant]
  11. LISINOPRIL (LISINOPRIL) [Concomitant]
  12. LATANOPROST (LATANOPROST) (NONE) [Concomitant]
  13. VITAMIN B12 (CYANCOBALAMIN) [Concomitant]
  14. ARMOUR THYROID (THYROID [Concomitant]
  15. SINGULAIR [Concomitant]
  16. ZANTAC (RANITIDINE HYDROCHLORIDE) [Concomitant]
  17. CALCIUM AND VITAMIN D (CALCIUM D3 ^STADA^) [Concomitant]
  18. FISH OIL (FISH OIL) [Concomitant]
  19. LEVAQUIN (LEVOFLOXACIN) [Concomitant]
  20. ALLOPURINOL (ALLOPURINOL) [Concomitant]
  21. LEVOTHYROXINE SODIUM (LEVOTHYROXINE SODIUM) [Concomitant]
  22. LIPITOR (ATORVASTATIN) [Concomitant]

REACTIONS (2)
  - Neutrophil count decreased [None]
  - Full blood count decreased [None]
